FAERS Safety Report 7825696-3 (Version None)
Quarter: 2011Q4

REPORT INFORMATION
  Report Type: 
  Country: None (occurrence: None)
  Receive Date: 20111019
  Receipt Date: 20111012
  Transmission Date: 20120403
  Serious: Yes (Death, Hospitalization)
  Sender: FDA-Public Use
  Company Number: US-CELGENEUS-163-20785-11083044

PATIENT
  Sex: Male

DRUGS (1)
  1. THALOMID [Suspect]
     Indication: HEPATIC NEOPLASM MALIGNANT
     Dosage: 100 MILLIGRAM
     Route: 048
     Dates: start: 20110801, end: 20110101

REACTIONS (5)
  - ARTHRALGIA [None]
  - JAUNDICE [None]
  - MUSCULOSKELETAL CHEST PAIN [None]
  - DEATH [None]
  - BACK PAIN [None]
